FAERS Safety Report 7680325-7 (Version None)
Quarter: 2011Q3

REPORT INFORMATION
  Report Type: 
  Country: None (occurrence: None)
  Receive Date: 20110812
  Receipt Date: 20110805
  Transmission Date: 20111222
  Serious: Yes (Death, Life-Threatening, Disabling, Other)
  Sender: FDA-Public Use
  Company Number: US-GLAXOSMITHKLINE-A0939910A

PATIENT
  Age: 51 Year
  Sex: Male

DRUGS (5)
  1. ZOLOFT [Concomitant]
  2. LANOXIN [Suspect]
     Indication: CARDIAC DISORDER
     Dosage: .25MG PER DAY
     Route: 048
  3. TOPROL-XL [Concomitant]
  4. ALLOPURINOL [Concomitant]
  5. COREG [Concomitant]

REACTIONS (1)
  - CARDIAC DISORDER [None]
